FAERS Safety Report 9025839 (Version 1)
Quarter: 2013Q1

REPORT INFORMATION
  Report Type: Spontaneous
  Country: US (occurrence: US)
  Receive Date: 20130123
  Receipt Date: 20130123
  Transmission Date: 20140127
  Serious: No
  Sender: FDA-Public Use
  Company Number: US-009507513-1301USA008260

PATIENT
  Age: 21 Year
  Sex: Female

DRUGS (1)
  1. IMPLANON [Suspect]
     Dosage: EVERY 3 YEARS
     Route: 059
     Dates: start: 20100107

REACTIONS (2)
  - Hypoaesthesia [Unknown]
  - Incorrect drug administration duration [Unknown]
